FAERS Safety Report 13961997 (Version 1)
Quarter: 2017Q3

REPORT INFORMATION
  Report Type: Spontaneous
  Country: US (occurrence: US)
  Receive Date: 20170912
  Receipt Date: 20170912
  Transmission Date: 20171128
  Serious: Yes (Other)
  Sender: FDA-Public Use
  Company Number: US-AKORN PHARMACEUTICALS-2017AKN01100

PATIENT
  Sex: Female

DRUGS (1)
  1. MYORISAN [Suspect]
     Active Substance: ISOTRETINOIN
     Dosage: UNK
     Dates: start: 20170620

REACTIONS (4)
  - Lip dry [Unknown]
  - Chapped lips [Unknown]
  - Staphylococcal infection [Unknown]
  - Lip exfoliation [Unknown]

NARRATIVE: CASE EVENT DATE: 2017
